FAERS Safety Report 4583422-8 (Version None)
Quarter: 2005Q1

REPORT INFORMATION
  Report Type: 
  Country: None (occurrence: None)
  Receive Date: 20050211
  Receipt Date: 20050201
  Transmission Date: 20050727
  Serious: Yes (Death, Other)
  Sender: FDA-Public Use
  Company Number: 2005008181

PATIENT
  Age: 92 Year
  Sex: Male

DRUGS (3)
  1. PHENYTOIN INJECTION (PHENYTOIN SODIUM) [Suspect]
     Indication: CONVULSION
     Dosage: SEE IMAGE
     Route: 042
     Dates: end: 20021106
  2. PHENYTOIN INJECTION (PHENYTOIN SODIUM) [Suspect]
     Indication: CONVULSION
     Dosage: SEE IMAGE
     Route: 042
     Dates: end: 20021106
  3. HALOPERIDOL (HALOPERIDOL) [Concomitant]

REACTIONS (9)
  - BARREL CHEST [None]
  - CEREBRAL ATROPHY [None]
  - CORONARY ARTERY DISEASE [None]
  - DRUG LEVEL BELOW THERAPEUTIC [None]
  - DRUG TOXICITY [None]
  - EMPHYSEMA [None]
  - NEPHROSCLEROSIS [None]
  - RENAL ATROPHY [None]
  - SOMNOLENCE [None]
